FAERS Safety Report 8910603 (Version 1)
Quarter: 2012Q4

REPORT INFORMATION
  Report Type: 
  Country: AU (occurrence: AU)
  Receive Date: 20121114
  Receipt Date: 20121114
  Transmission Date: 20130627
  Serious: Yes (Other)
  Sender: FDA-Public Use
  Company Number: AU-GLAXOSMITHKLINE-B0545790A

PATIENT
  Sex: Female

DRUGS (2)
  1. SERETIDE (50MCG/100MCG) [Suspect]
     Indication: ASTHMA
     Route: 055
  2. VENTOLIN [Suspect]
     Indication: WHEEZING
     Route: 065

REACTIONS (5)
  - Postpartum haemorrhage [Unknown]
  - Transfusion [Unknown]
  - Haemorrhage [Unknown]
  - Live birth [Unknown]
  - Exposure during pregnancy [Unknown]
